FAERS Safety Report 10043299 (Version 1)
Quarter: 2014Q1

REPORT INFORMATION
  Report Type: Spontaneous
  Country: US (occurrence: None)
  Receive Date: 20140327
  Receipt Date: 20140327
  Transmission Date: 20141002
  Serious: No
  Sender: FDA-Public Use
  Company Number: None

PATIENT
  Age: 42 Year
  Sex: Female
  Weight: 88.45 kg

DRUGS (1)
  1. CHOLESTYRAMINE [Suspect]
     Indication: DIARRHOEA
     Dosage: 1 PACKET
     Route: 048
     Dates: start: 20140131, end: 20140301

REACTIONS (1)
  - Drug ineffective [None]
